FAERS Safety Report 5643957-3 (Version None)
Quarter: 2008Q1

REPORT INFORMATION
  Report Type: 
  Country: None (occurrence: None)
  Receive Date: 20080226
  Receipt Date: 20080213
  Transmission Date: 20080703
  Serious: Yes (Other)
  Sender: FDA-Public Use
  Company Number: 8029565

PATIENT
  Age: 31 Year
  Sex: Female
  Weight: 116.82 kg

DRUGS (3)
  1. KEPPRA [Suspect]
     Indication: EPILEPSY
     Dosage: 500 MG 3/D  PO
     Route: 048
     Dates: start: 20060901
  2. EFFEXOR [Concomitant]
  3. AMBIEN [Concomitant]

REACTIONS (12)
  - ABORTION SPONTANEOUS [None]
  - BLOOD TRIGLYCERIDES INCREASED [None]
  - CONVULSION [None]
  - DEPRESSION [None]
  - DIARRHOEA [None]
  - DRUG EXPOSURE DURING PREGNANCY [None]
  - DYSPNOEA [None]
  - INFLUENZA LIKE ILLNESS [None]
  - PREGNANCY [None]
  - REFUSAL OF TREATMENT BY RELATIVE [None]
  - VOMITING [None]
  - WEIGHT INCREASED [None]
